FAERS Safety Report 9515647 (Version 1)
Quarter: 2013Q3

REPORT INFORMATION
  Report Type: Spontaneous
  Country: US (occurrence: US)
  Receive Date: 20130911
  Receipt Date: 20130911
  Transmission Date: 20140515
  Serious: Yes (Hospitalization)
  Sender: FDA-Public Use
  Company Number: US-BAYER-2013-109317

PATIENT
  Age: 46 Year
  Sex: Female
  Weight: 70.3 kg

DRUGS (4)
  1. YASMIN [Suspect]
  2. ECOTRIN [Concomitant]
  3. AGGRENOX [Concomitant]
  4. Z-PAK [Concomitant]
     Indication: SINUSITIS

REACTIONS (1)
  - Transient ischaemic attack [Recovered/Resolved]
